FAERS Safety Report 14356843 (Version 1)
Quarter: 2018Q1

REPORT INFORMATION
  Report Type: Spontaneous
  Country: US (occurrence: US)
  Receive Date: 20180105
  Receipt Date: 20180105
  Transmission Date: 20180509
  Serious: Yes (Other)
  Sender: FDA-Public Use
  Company Number: US-TEVA-2017-US-842529

PATIENT
  Sex: Female

DRUGS (1)
  1. QUETIAPINE FUMARATE. [Suspect]
     Active Substance: QUETIAPINE FUMARATE
     Indication: SLEEP DISORDER
     Dates: start: 201709, end: 201709

REACTIONS (10)
  - Abdominal pain upper [Unknown]
  - Hyperhidrosis [Unknown]
  - Pain [Unknown]
  - Blood glucose increased [Unknown]
  - Amnesia [Unknown]
  - Fatigue [Unknown]
  - Feeling hot [Unknown]
  - Malaise [Unknown]
  - Vision blurred [Unknown]
  - Fall [Unknown]

NARRATIVE: CASE EVENT DATE: 201709
